FAERS Safety Report 5807259-4 (Version None)
Quarter: 2008Q3

REPORT INFORMATION
  Report Type: 
  Country: None (occurrence: None)
  Receive Date: 20080709
  Receipt Date: 20080709
  Transmission Date: 20090109
  Serious: Yes (Life-Threatening, Other)
  Sender: FDA-Public Use
  Company Number: None

PATIENT
  Sex: Female
  Weight: 73.9363 kg

DRUGS (1)
  1. LYRICA [Suspect]
     Indication: PAIN IN EXTREMITY
     Dosage: 3  PER DAY
     Dates: start: 20060502, end: 20060502

REACTIONS (4)
  - AMNESIA [None]
  - DRUG TOLERANCE DECREASED [None]
  - MOTOR DYSFUNCTION [None]
  - PHARMACEUTICAL PRODUCT COMPLAINT [None]
